FAERS Safety Report 7995280-X (Version None)
Quarter: 2011Q4

REPORT INFORMATION
  Report Type: 
  Country: None (occurrence: None)
  Receive Date: 20111220
  Receipt Date: 20111214
  Transmission Date: 20120403
  Serious: Yes (Other)
  Sender: FDA-Public Use
  Company Number: BR-ABBOTT-11P-020-0712882-00

PATIENT
  Sex: Female
  Weight: 85 kg

DRUGS (11)
  1. DEPAKENE [Suspect]
     Indication: PRODUCT USED FOR UNKNOWN INDICATION
     Route: 048
  2. DEPAKENE [Interacting]
     Indication: MUCOSAL DRYNESS
  3. LIDOCAINE [Concomitant]
     Indication: ANAESTHESIA
     Dates: start: 20110601
  4. DEPAKENE [Interacting]
     Indication: POLYDIPSIA
  5. DEPAKENE [Interacting]
     Indication: DIZZINESS
  6. DEPAKENE [Interacting]
     Indication: FEELING ABNORMAL
  7. LIDOCAINE [Interacting]
     Indication: APPLICATION SITE ANAESTHESIA
     Dosage: APPLICATION ON THE GUM AND ON THE CHEEK
     Route: 061
     Dates: start: 20110302
  8. DEPAKENE [Interacting]
     Indication: ABDOMINAL PAIN UPPER
  9. DEPAKENE [Interacting]
     Indication: TACHYCARDIA
  10. DEPAKENE [Interacting]
     Indication: SUFFOCATION FEELING
  11. DEPAKENE [Interacting]
     Indication: VISUAL IMPAIRMENT

REACTIONS (10)
  - DRUG INTERACTION [None]
  - SUFFOCATION FEELING [None]
  - DENTAL CARIES [None]
  - PANIC ATTACK [None]
  - DIZZINESS [None]
  - CHOKING SENSATION [None]
  - SENSORY DISTURBANCE [None]
  - HYPERTENSION [None]
  - HEART RATE INCREASED [None]
  - ERUCTATION [None]
